FAERS Safety Report 4275935-3 (Version None)
Quarter: 2004Q1

REPORT INFORMATION
  Report Type: 
  Country: None (occurrence: None)
  Receive Date: 20040121
  Receipt Date: 20030312
  Transmission Date: 20041129
  Serious: No
  Sender: FDA-Public Use
  Company Number: US-GLAXOSMITHKLINE-A0401830A

PATIENT
  Age: 50 Year
  Sex: Female
  Weight: 63.6 kg

DRUGS (3)
  1. VALTREX [Suspect]
     Route: 048
  2. ABREVA [Suspect]
     Route: 061
  3. CLARITIN [Concomitant]
     Indication: FOOD ALLERGY

REACTIONS (2)
  - APPLICATION SITE IRRITATION [None]
  - DRUG INEFFECTIVE [None]
